FAERS Safety Report 8264966-4 (Version None)
Quarter: 2012Q2

REPORT INFORMATION
  Report Type: 
  Country: None (occurrence: None)
  Receive Date: 20120403
  Receipt Date: 20120320
  Transmission Date: 20120825
  Serious: Yes (Hospitalization)
  Sender: FDA-Public Use
  Company Number: USW201203-000051

PATIENT
  Age: 60 Year
  Sex: Female

DRUGS (1)
  1. APOKYN [Suspect]
     Indication: PRODUCT USED FOR UNKNOWN INDICATION
     Dosage: 4.5 MG/HOUR

REACTIONS (1)
  - HAEMOLYTIC ANAEMIA [None]
